FAERS Safety Report 7171144-9 (Version None)
Quarter: 2010Q4

REPORT INFORMATION
  Report Type: 
  Country: None (occurrence: None)
  Receive Date: 20101217
  Receipt Date: 20101203
  Transmission Date: 20110411
  Serious: Yes (Other)
  Sender: FDA-Public Use
  Company Number: ES-GENENTECH-310932

PATIENT
  Age: 91 Year
  Sex: Male

DRUGS (2)
  1. LUCENTIS [Suspect]
     Indication: MACULAR DEGENERATION
     Dosage: UNK
     Route: 031
  2. LUCENTIS [Suspect]
     Dosage: 0.5 MG, UNK
     Route: 031
     Dates: start: 20101110

REACTIONS (5)
  - BLOOD PRESSURE INCREASED [None]
  - CYCLITIC MEMBRANE [None]
  - HYPOPYON [None]
  - UVEITIS [None]
  - VITREOUS OPACITIES [None]
